FAERS Safety Report 6187936-9 (Version None)
Quarter: 2009Q2

REPORT INFORMATION
  Report Type: 
  Country: None (occurrence: None)
  Receive Date: 20090513
  Receipt Date: 20090504
  Transmission Date: 20091009
  Serious: Yes (Death, Hospitalization)
  Sender: FDA-Public Use
  Company Number: ES-MERCK-0905ESP00007

PATIENT
  Age: 56 Year
  Sex: Male

DRUGS (4)
  1. ZOCOR [Suspect]
     Indication: BLOOD CHOLESTEROL INCREASED
     Route: 048
     Dates: start: 20070701, end: 20070801
  2. ZOCOR [Suspect]
     Indication: BLOOD TRIGLYCERIDES INCREASED
     Route: 048
     Dates: start: 20070701, end: 20070801
  3. SIROLIMUS [Suspect]
     Indication: LIVER TRANSPLANT REJECTION
     Route: 065
     Dates: start: 20070701, end: 20070801
  4. TACROLIMUS [Suspect]
     Indication: LIVER TRANSPLANT
     Route: 065
     Dates: end: 20070801

REACTIONS (3)
  - DRUG INTERACTION [None]
  - RENAL FAILURE ACUTE [None]
  - RHABDOMYOLYSIS [None]
